FAERS Safety Report 21845908 (Version 1)
Quarter: 2023Q1

REPORT INFORMATION
  Report Type: Spontaneous
  Country: CA (occurrence: CA)
  Receive Date: 20230111
  Receipt Date: 20230111
  Transmission Date: 20230418
  Serious: Yes (Hospitalization)
  Sender: FDA-Public Use
  Company Number: CA-002147023-NVSC2023CA004805

PATIENT
  Age: 24 Year
  Sex: Male

DRUGS (22)
  1. CARBAMAZEPINE [Suspect]
     Active Substance: CARBAMAZEPINE
     Indication: Language disorder
     Dosage: 200 MG, BID (2 EVERY 1 DAYS)
     Route: 065
  2. CARBAMAZEPINE [Suspect]
     Active Substance: CARBAMAZEPINE
     Indication: Intellectual disability
  3. CARBAMAZEPINE [Suspect]
     Active Substance: CARBAMAZEPINE
     Indication: Autism spectrum disorder
  4. OLANZAPINE [Suspect]
     Active Substance: OLANZAPINE
     Indication: Language disorder
     Dosage: UNK
     Route: 065
  5. OLANZAPINE [Suspect]
     Active Substance: OLANZAPINE
     Indication: Intellectual disability
  6. OLANZAPINE [Suspect]
     Active Substance: OLANZAPINE
     Indication: Autism spectrum disorder
  7. GABAPENTIN [Suspect]
     Active Substance: GABAPENTIN
     Indication: Language disorder
     Dosage: 600 MG, TID (3 EVERY 1 DAYS)
     Route: 065
  8. GABAPENTIN [Suspect]
     Active Substance: GABAPENTIN
     Indication: Intellectual disability
     Dosage: 400 MG, TID (3 EVERY 1 DAYS)
     Route: 065
  9. GABAPENTIN [Suspect]
     Active Substance: GABAPENTIN
     Indication: Autism spectrum disorder
  10. PROCYCLIDINE [Suspect]
     Active Substance: PROCYCLIDINE
     Indication: Language disorder
     Dosage: 5 MG
     Route: 065
  11. PROCYCLIDINE [Suspect]
     Active Substance: PROCYCLIDINE
     Indication: Intellectual disability
  12. PROCYCLIDINE [Suspect]
     Active Substance: PROCYCLIDINE
     Indication: Autism spectrum disorder
  13. ZOPICLONE [Suspect]
     Active Substance: ZOPICLONE
     Indication: Aggression
     Dosage: 15 MG QID (4 EVERY 1 DAYS)
     Route: 065
  14. ZUCLOPENTHIXOL [Suspect]
     Active Substance: ZUCLOPENTHIXOL
     Indication: Language disorder
     Dosage: 25 MG BID (2 EVERY 1 DAYS)
     Route: 065
  15. ZUCLOPENTHIXOL [Suspect]
     Active Substance: ZUCLOPENTHIXOL
     Indication: Intellectual disability
  16. ZUCLOPENTHIXOL [Suspect]
     Active Substance: ZUCLOPENTHIXOL
     Indication: Autism spectrum disorder
  17. LOXAPINE [Concomitant]
     Active Substance: LOXAPINE
     Indication: Language disorder
     Dosage: 25 MG, BID (2 EVERY 1 DAYS)
     Route: 065
  18. LOXAPINE [Concomitant]
     Active Substance: LOXAPINE
     Indication: Intellectual disability
  19. LOXAPINE [Concomitant]
     Active Substance: LOXAPINE
     Indication: Autism spectrum disorder
  20. FLUOXETINE [Concomitant]
     Active Substance: FLUOXETINE HYDROCHLORIDE
     Indication: Language disorder
     Dosage: 40 MG
     Route: 065
  21. FLUOXETINE [Concomitant]
     Active Substance: FLUOXETINE HYDROCHLORIDE
     Indication: Intellectual disability
  22. FLUOXETINE [Concomitant]
     Active Substance: FLUOXETINE HYDROCHLORIDE
     Indication: Autism spectrum disorder

REACTIONS (2)
  - Product use in unapproved indication [Unknown]
  - Drug ineffective for unapproved indication [Unknown]
